FAERS Safety Report 7139271-X (Version None)
Quarter: 2010Q4

REPORT INFORMATION
  Report Type: 
  Country: None (occurrence: None)
  Receive Date: 20101206
  Receipt Date: 20101206
  Transmission Date: 20110411
  Serious: Yes (Life-Threatening, Hospitalization)
  Sender: FDA-Public Use
  Company Number: US-KINGPHARMUSA00001-K201001351

PATIENT
  Age: 75 Year
  Sex: Male

DRUGS (1)
  1. EPIPEN [Suspect]
     Indication: ANAPHYLACTIC REACTION
     Dosage: 0.3 MG, SINGLE
     Route: 030
     Dates: start: 20101103, end: 20101103

REACTIONS (2)
  - AMNESIA [None]
  - DRUG INEFFECTIVE [None]
